FAERS Safety Report 17441564 (Version 1)
Quarter: 2020Q1

REPORT INFORMATION
  Report Type: Report from Study
  Country: GB (occurrence: GB)
  Receive Date: 20200220
  Receipt Date: 20200220
  Transmission Date: 20200409
  Serious: Yes (Hospitalization)
  Sender: FDA-Public Use
  Company Number: GB-JNJFOC-20200213070

PATIENT
  Age: 69 Year
  Sex: Male
  Weight: 81.2 kg

DRUGS (20)
  1. STELARA [Suspect]
     Active Substance: USTEKINUMAB
     Indication: PSORIASIS
     Route: 058
     Dates: start: 20120203
  2. ASPIRIN. [Concomitant]
     Active Substance: ASPIRIN
     Dates: start: 20120110
  3. FOLIC ACID. [Concomitant]
     Active Substance: FOLIC ACID
     Dates: start: 20120910
  4. METOCLOPRAMIDE. [Concomitant]
     Active Substance: METOCLOPRAMIDE
     Dates: start: 20140204
  5. HYDROXYZINE [Concomitant]
     Active Substance: HYDROXYZINE HYDROCHLORIDE
     Dates: start: 20120910
  6. BECOTIDE [Concomitant]
     Active Substance: BECLOMETHASONE DIPROPIONATE
     Dates: start: 20070101
  7. LANSOPRAZOLE. [Concomitant]
     Active Substance: LANSOPRAZOLE
     Dates: start: 20120910
  8. SALBUTAMOL [Concomitant]
     Active Substance: ALBUTEROL
     Dates: start: 20070101
  9. ATORVASTATIN [Concomitant]
     Active Substance: ATORVASTATIN
     Dates: start: 20140204
  10. SIMVASTATIN. [Concomitant]
     Active Substance: SIMVASTATIN
     Dates: start: 20120110
  11. DOXEPIN [Concomitant]
     Active Substance: DOXEPIN
     Dates: start: 20120910
  12. METFORMIN [Concomitant]
     Active Substance: METFORMIN HYDROCHLORIDE
     Dates: start: 20110601
  13. GABAPENTIN. [Concomitant]
     Active Substance: GABAPENTIN
     Dates: start: 20120910
  14. GLICLAZIDE [Concomitant]
     Active Substance: GLICLAZIDE
     Dates: start: 20140204
  15. TICAGRELOR. [Concomitant]
     Active Substance: TICAGRELOR
     Dates: start: 20140204
  16. BISOPROLOL [Concomitant]
     Active Substance: BISOPROLOL
     Dates: start: 20140204
  17. BISOPROLOL [Concomitant]
     Active Substance: BISOPROLOL
     Dates: start: 20190529
  18. VENTOLINE                          /00139501/ [Concomitant]
     Active Substance: ALBUTEROL
     Dates: start: 20140204
  19. ACITRETIN. [Concomitant]
     Active Substance: ACITRETIN
     Dates: start: 20160810, end: 20190201
  20. CLOPIDOGREL [Concomitant]
     Active Substance: CLOPIDOGREL BISULFATE
     Dates: start: 20190529

REACTIONS (2)
  - Lacunar infarction [Not Recovered/Not Resolved]
  - Urticaria [Not Recovered/Not Resolved]

NARRATIVE: CASE EVENT DATE: 2019
